FAERS Safety Report 6539973-X (Version None)
Quarter: 2010Q1

REPORT INFORMATION
  Report Type: 
  Country: None (occurrence: None)
  Receive Date: 20100115
  Receipt Date: 20100106
  Transmission Date: 20100710
  Serious: Yes (Hospitalization)
  Sender: FDA-Public Use
  Company Number: PHHY2010FR01081

PATIENT
  Age: 42 Year
  Sex: Female

DRUGS (5)
  1. NEORAL [Suspect]
     Indication: COLITIS ULCERATIVE
     Dosage: 140 MG, BID
     Route: 048
     Dates: start: 20090901, end: 20091106
  2. IMUREL [Suspect]
     Indication: COLITIS ULCERATIVE
     Dosage: UNK
     Route: 048
     Dates: start: 20090901, end: 20091113
  3. BACTRIM [Concomitant]
  4. LEXOMIL [Concomitant]
  5. DOLIPRANE [Concomitant]

REACTIONS (4)
  - CHROMATURIA [None]
  - FAECES DISCOLOURED [None]
  - JAUNDICE CHOLESTATIC [None]
  - PRURITUS [None]
